FAERS Safety Report 7504305-7 (Version None)
Quarter: 2011Q2

REPORT INFORMATION
  Report Type: 
  Country: None (occurrence: None)
  Receive Date: 20110525
  Receipt Date: 20110519
  Transmission Date: 20111010
  Serious: Yes (Death, Hospitalization)
  Sender: FDA-Public Use
  Company Number: GB-PFIZER INC-2011108604

PATIENT
  Age: 64 Year
  Sex: Female
  Weight: 70 kg

DRUGS (13)
  1. SULFASALAZINE [Suspect]
     Indication: RHEUMATOID ARTHRITIS
     Dosage: 500 MG, 1X/DAY
     Route: 048
     Dates: start: 20110315, end: 20110321
  2. SULFASALAZINE [Suspect]
     Dosage: 500 MG, 2X/DAY
     Route: 048
     Dates: start: 20110322, end: 20110328
  3. LANSOPRAZOLE [Concomitant]
  4. SULFASALAZINE [Suspect]
     Dosage: 500 MG, 3X/DAY
     Route: 048
     Dates: start: 20110329, end: 20110404
  5. ADCAL-D3 [Concomitant]
  6. ACETYLSALICYLIC ACID [Concomitant]
     Dosage: 75 MG, 1X/DAY
     Dates: end: 20110315
  7. LEVOTHYROXINE SODIUM [Concomitant]
  8. RISEDRONATE SODIUM [Concomitant]
  9. TIOTROPIUM BROMIDE [Concomitant]
  10. VENTOLIN [Concomitant]
  11. SULFASALAZINE [Suspect]
     Dosage: 1 G, 2X/DAY
     Route: 048
     Dates: start: 20110405, end: 20110411
  12. ISOSORBIDE MONONITRATE [Concomitant]
  13. SERETIDE [Concomitant]

REACTIONS (10)
  - EYE PAIN [None]
  - OROPHARYNGEAL PAIN [None]
  - TOXIC EPIDERMAL NECROLYSIS [None]
  - RESPIRATORY DISORDER [None]
  - EYE SWELLING [None]
  - LIP BLISTER [None]
  - STEVENS-JOHNSON SYNDROME [None]
  - MULTI-ORGAN FAILURE [None]
  - VULVOVAGINAL DISCOMFORT [None]
  - SKIN EXFOLIATION [None]
